FAERS Safety Report 9562377 (Version 1)
Quarter: 2013Q3

REPORT INFORMATION
  Report Type: Spontaneous
  Country: JP (occurrence: JP)
  Receive Date: 20130927
  Receipt Date: 20130927
  Transmission Date: 20140515
  Serious: Yes (Other)
  Sender: FDA-Public Use
  Company Number: JP-SANOFI-AVENTIS-2013SA092526

PATIENT
  Age: 16 Year
  Sex: Female
  Weight: 45.2 kg

DRUGS (2)
  1. FLUDARA [Suspect]
     Indication: PROPHYLAXIS
     Route: 042
     Dates: start: 20121006, end: 20121008
  2. PROGRAF [Concomitant]
     Indication: PROPHYLAXIS
     Dates: start: 20121019, end: 20121115

REACTIONS (1)
  - Thrombotic microangiopathy [Not Recovered/Not Resolved]
